FAERS Safety Report 8337246-6 (Version None)
Quarter: 2012Q2

REPORT INFORMATION
  Report Type: 
  Country: None (occurrence: None)
  Receive Date: 20120502
  Receipt Date: 20120417
  Transmission Date: 20120825
  Serious: Yes (Other)
  Sender: FDA-Public Use
  Company Number: 2012SP020784

PATIENT
  Age: 51 Year
  Sex: Male
  Weight: 90.6 kg

DRUGS (16)
  1. GS-9451 [Suspect]
     Indication: HEPATITIS C
     Dosage: 2 DF;QD;PO ; 2 DF;QD;PO
     Route: 048
     Dates: start: 20111229, end: 20120118
  2. GS-9451 [Suspect]
     Indication: HEPATITIS C
     Dosage: 2 DF;QD;PO ; 2 DF;QD;PO
     Route: 048
     Dates: start: 20120119, end: 20120313
  3. ZITHROMAX [Concomitant]
  4. METOPROLOL TARTRATE [Concomitant]
  5. GB-5885 [Suspect]
     Indication: HEPATITIS C
     Dosage: 3 DF;QD;PO ; 3 DF;QD;PO
     Route: 048
     Dates: start: 20111229, end: 20120118
  6. GB-5885 [Suspect]
     Indication: HEPATITIS C
     Dosage: 3 DF;QD;PO ; 3 DF;QD;PO
     Route: 048
     Dates: start: 20120119, end: 20120313
  7. ASPIRIN [Concomitant]
  8. RANITIDINE [Concomitant]
  9. SULINDAC [Concomitant]
  10. CELEXA [Concomitant]
  11. TYLENOL (CAPLET) [Concomitant]
  12. CODEINE [Concomitant]
  13. RIBAVIRIN [Suspect]
     Indication: HEPATITIS C
     Dosage: 600 MG;BID;PO ; 600 MG;BID;PO
     Route: 048
     Dates: start: 20110119, end: 20120313
  14. RIBAVIRIN [Suspect]
     Indication: HEPATITIS C
     Dosage: 600 MG;BID;PO ; 600 MG;BID;PO
     Route: 048
     Dates: start: 20111229, end: 20120118
  15. PEGINTERFERON ALFA-2A [Suspect]
     Indication: HEPATITIS C
     Dosage: 180 MCG;QW;SC
     Route: 058
     Dates: start: 20120119, end: 20120309
  16. PLACEBO [Suspect]
     Indication: HEPATITIS C
     Dosage: 1 DF;BID;PO
     Route: 048
     Dates: start: 20111229, end: 20120118

REACTIONS (15)
  - PERONEAL NERVE PALSY [None]
  - FALL [None]
  - DRUG HYPERSENSITIVITY [None]
  - RASH ERYTHEMATOUS [None]
  - OEDEMA [None]
  - PERIPHERAL SENSORIMOTOR NEUROPATHY [None]
  - INFECTION [None]
  - RASH PAPULAR [None]
  - TENDERNESS [None]
  - DEMYELINATION [None]
  - PRURITUS [None]
  - THERAPEUTIC RESPONSE DECREASED [None]
  - STAPHYLOCOCCUS TEST POSITIVE [None]
  - ORAL DISORDER [None]
  - PARAKERATOSIS [None]
